FAERS Safety Report 4296559-8 (Version None)
Quarter: 2004Q1

REPORT INFORMATION
  Report Type: 
  Country: None (occurrence: None)
  Receive Date: 20040122
  Receipt Date: 20031120
  Transmission Date: 20041129
  Serious: Yes (Other)
  Sender: FDA-Public Use
  Company Number: 2003121798

PATIENT
  Age: 59 Year
  Sex: Female
  Weight: 65.7716 kg

DRUGS (5)
  1. RELPAX [Suspect]
     Indication: MIGRAINE
     Dosage: ORAL
     Route: 048
     Dates: start: 20031120
  2. DIPHENHYDRAMINE HYDROCHLORIDE (DIPHENYDRAMINE HYDROCHLORIDE) [Suspect]
     Indication: HYPERSENSITIVITY
  3. ESTRATEST HS (METHYLTESTOSTERRONE, ESTROGENS ESTERIFIED) [Concomitant]
  4. PROPRANOLOL HCL [Concomitant]
  5. HYDROCHLOROTHIAZINE (HYDROCHOROTHIAZINE) [Concomitant]

REACTIONS (3)
  - EYE SWELLING [None]
  - RASH [None]
  - SOMNOLENCE [None]
